FAERS Safety Report 25118388 (Version 1)
Quarter: 2025Q1

REPORT INFORMATION
  Report Type: Spontaneous
  Country: CO (occurrence: CO)
  Receive Date: 20250325
  Receipt Date: 20250325
  Transmission Date: 20250409
  Serious: Yes (Hospitalization)
  Sender: MERCK SHARP & DOHME LLC
  Company Number: CO-009507513-2254672

PATIENT
  Age: 71 Year
  Sex: Female

DRUGS (5)
  1. JANUMET [Suspect]
     Active Substance: METFORMIN HYDROCHLORIDE\SITAGLIPTIN PHOSPHATE
     Indication: Type 2 diabetes mellitus
     Route: 048
     Dates: start: 2021, end: 202501
  2. JANUMET XR [Suspect]
     Active Substance: METFORMIN HYDROCHLORIDE\SITAGLIPTIN PHOSPHATE
     Indication: Type 2 diabetes mellitus
     Route: 048
     Dates: start: 202501
  3. AZACITIDINE [Concomitant]
     Active Substance: AZACITIDINE
     Indication: Vasculitis
  4. METHOTREXATE [Concomitant]
     Active Substance: METHOTREXATE
  5. RITUXIMAB [Concomitant]
     Active Substance: RITUXIMAB

REACTIONS (5)
  - Urinary tract infection [Recovered/Resolved]
  - Product availability issue [Unknown]
  - Blood glucose increased [Recovered/Resolved]
  - Product dose omission issue [Unknown]
  - Restlessness [Unknown]

NARRATIVE: CASE EVENT DATE: 20250101
